FAERS Safety Report 6488355-8 (Version None)
Quarter: 2009Q4

REPORT INFORMATION
  Report Type: 
  Country: None (occurrence: None)
  Receive Date: 20091210
  Receipt Date: 20090922
  Transmission Date: 20100525
  Serious: No
  Sender: FDA-Public Use
  Company Number: US-AMGEN-KDL362247

PATIENT
  Sex: Female
  Weight: 60.4 kg

DRUGS (3)
  1. ENBREL [Suspect]
     Indication: RHEUMATOID ARTHRITIS
     Route: 058
     Dates: start: 20050201, end: 20090721
  2. METOPROLOL [Concomitant]
  3. PREDNISONE [Concomitant]

REACTIONS (2)
  - ENDODONTIC PROCEDURE [None]
  - PAIN IN JAW [None]
